FAERS Safety Report 18234428 (Version 1)
Quarter: 2020Q3

REPORT INFORMATION
  Report Type: Spontaneous
  Country: CN (occurrence: CN)
  Receive Date: 20200904
  Receipt Date: 20200904
  Transmission Date: 20201103
  Serious: Yes (Other)
  Sender: FDA-Public Use
  Company Number: CN-TOPROL-202000009

PATIENT
  Age: 77 Year
  Sex: Male
  Weight: 55 kg

DRUGS (4)
  1. AMIODARONE HYDROCHLORIDE. [Suspect]
     Active Substance: AMIODARONE HYDROCHLORIDE
     Indication: ARRHYTHMIA
     Dates: start: 20200820
  2. AMIODARONE HYDROCHLORIDE. [Suspect]
     Active Substance: AMIODARONE HYDROCHLORIDE
     Indication: ARRHYTHMIA
     Dates: start: 20200812, end: 20200820
  3. BETALOC ZOK [Suspect]
     Active Substance: METOPROLOL SUCCINATE
     Indication: ARRHYTHMIA
     Dates: start: 20200820
  4. BETALOC ZOK [Suspect]
     Active Substance: METOPROLOL SUCCINATE
     Indication: ARRHYTHMIA
     Dates: start: 20200812, end: 20200820

REACTIONS (3)
  - Bundle branch block right [Recovering/Resolving]
  - Sinus bradycardia [Recovering/Resolving]
  - Atrioventricular block first degree [Recovering/Resolving]

NARRATIVE: CASE EVENT DATE: 20200817
